FAERS Safety Report 13206382 (Version 1)
Quarter: 2017Q1

REPORT INFORMATION
  Report Type: Spontaneous
  Country: US (occurrence: US)
  Receive Date: 20170209
  Receipt Date: 20170209
  Transmission Date: 20170428
  Serious: No
  Sender: FDA-Public Use
  Company Number: US-SA-2016SA198256

PATIENT
  Age: 81 Year
  Sex: Female

DRUGS (15)
  1. PRALUENT [Suspect]
     Active Substance: ALIROCUMAB
     Indication: TYPE IIA HYPERLIPIDAEMIA
     Route: 058
     Dates: start: 20160725
  2. TOLTERODINE [Concomitant]
     Active Substance: TOLTERODINE
  3. ATORVASTATIN [Concomitant]
     Active Substance: ATORVASTATIN
  4. FLEXPEN [Concomitant]
     Active Substance: UNSPECIFIED INGREDIENT
  5. DEXILANT [Concomitant]
     Active Substance: DEXLANSOPRAZOLE
  6. LYRICA [Concomitant]
     Active Substance: PREGABALIN
  7. ESTRACE [Concomitant]
     Active Substance: ESTRADIOL
     Dosage: 0.1MG/GM
  8. GABAPENTIN. [Concomitant]
     Active Substance: GABAPENTIN
  9. LEVEMIR [Concomitant]
     Active Substance: INSULIN DETEMIR
  10. LEVOTHYROXINE. [Concomitant]
     Active Substance: LEVOTHYROXINE
  11. NIFEDIPINE. [Concomitant]
     Active Substance: NIFEDIPINE
  12. VALSARTAN. [Concomitant]
     Active Substance: VALSARTAN
  13. ALIROCUMAB PREFILLED PEN [Concomitant]
     Active Substance: ALIROCUMAB
     Dates: start: 20160725
  14. METOPROLOL. [Concomitant]
     Active Substance: METOPROLOL
  15. SUCRALFATE. [Concomitant]
     Active Substance: SUCRALFATE

REACTIONS (3)
  - Abdominal discomfort [Not Recovered/Not Resolved]
  - Diarrhoea [Not Recovered/Not Resolved]
  - Injection site mass [Not Recovered/Not Resolved]

NARRATIVE: CASE EVENT DATE: 2016
